FAERS Safety Report 6296386-6 (Version None)
Quarter: 2009Q3

REPORT INFORMATION
  Report Type: 
  Country: None (occurrence: None)
  Receive Date: 20090804
  Receipt Date: 20090727
  Transmission Date: 20100115
  Serious: Yes (Hospitalization)
  Sender: FDA-Public Use
  Company Number: TW-JNJFOC-20090709165

PATIENT
  Age: 13 Year
  Sex: Female

DRUGS (8)
  1. HALOPERIDOL [Suspect]
     Route: 065
  2. HALOPERIDOL [Suspect]
     Indication: TIC
     Route: 065
  3. ALPRAZOLAM [Suspect]
     Indication: TIC
     Route: 065
  4. BIPERIDEN HYDROCHLORIDE TAB [Suspect]
     Indication: DRUG USE FOR UNKNOWN INDICATION
     Route: 065
  5. LAMOTRIGINE [Suspect]
     Route: 065
  6. LAMOTRIGINE [Suspect]
     Indication: STATUS EPILEPTICUS
     Route: 065
  7. DIAZEPAM [Suspect]
     Indication: DRUG USE FOR UNKNOWN INDICATION
     Route: 065
  8. CLONAZEPAM [Suspect]
     Indication: STATUS EPILEPTICUS
     Route: 065

REACTIONS (3)
  - DRUG INEFFECTIVE [None]
  - EXTRAPYRAMIDAL DISORDER [None]
  - TIC [None]
